FAERS Safety Report 10501220 (Version 1)
Quarter: 2014Q4

REPORT INFORMATION
  Report Type: Spontaneous
  Country: US (occurrence: None)
  Receive Date: 20141006
  Receipt Date: 20141006
  Transmission Date: 20150528
  Serious: Yes (Life-Threatening)
  Sender: FDA-Public Use
  Company Number: None

PATIENT
  Age: 56 Year
  Sex: Female
  Weight: 132.4 kg

DRUGS (1)
  1. CIPROFLOXACIN. [Suspect]
     Active Substance: CIPROFLOXACIN
     Indication: URINARY TRACT INFECTION
     Dosage: 500 MG  ONCE  IV
     Route: 042
     Dates: start: 20140327, end: 20140327

REACTIONS (4)
  - Rash [None]
  - Angioedema [None]
  - Injection site pain [None]
  - Anaphylactic reaction [None]

NARRATIVE: CASE EVENT DATE: 20140327
